FAERS Safety Report 6103423-8 (Version None)
Quarter: 2009Q1

REPORT INFORMATION
  Report Type: 
  Country: None (occurrence: None)
  Receive Date: 20090305
  Receipt Date: 20090223
  Transmission Date: 20090719
  Serious: Yes (Other)
  Sender: FDA-Public Use
  Company Number: PHHY2009CA06774

PATIENT
  Sex: Male

DRUGS (1)
  1. SANDOSTATIN LAR [Suspect]
     Indication: INSULINOMA
     Dosage: 20 MG, QMO
     Route: 030
     Dates: start: 20070201

REACTIONS (10)
  - ABDOMINAL PAIN [None]
  - BIOPSY PARATHYROID GLAND [None]
  - BLOOD GLUCOSE DECREASED [None]
  - EATING DISORDER [None]
  - INSOMNIA [None]
  - NAUSEA [None]
  - PAIN [None]
  - PALLOR [None]
  - UNRESPONSIVE TO STIMULI [None]
  - VOMITING [None]
